FAERS Safety Report 8413545-4 (Version None)
Quarter: 2012Q2

REPORT INFORMATION
  Report Type: 
  Country: None (occurrence: None)
  Receive Date: 20120605
  Receipt Date: 20120530
  Transmission Date: 20120825
  Serious: Yes (Congenital Anomaly)
  Sender: FDA-Public Use
  Company Number: US-GLAXOSMITHKLINE-A0980079A

PATIENT
  Sex: Male

DRUGS (4)
  1. PAXIL [Suspect]
     Indication: ANXIETY
     Dosage: 30MG PER DAY
     Route: 064
  2. ZANTAC [Concomitant]
  3. MULTI-VITAMINS [Concomitant]
  4. MACROBID [Concomitant]
     Dates: start: 20030731

REACTIONS (2)
  - HYDROCELE [None]
  - FOETAL EXPOSURE DURING PREGNANCY [None]
